FAERS Safety Report 7263039-7 (Version None)
Quarter: 2011Q1

REPORT INFORMATION
  Report Type: 
  Country: None (occurrence: None)
  Receive Date: 20110130
  Receipt Date: 20100917
  Transmission Date: 20110831
  Serious: No
  Sender: FDA-Public Use
  Company Number: US-ABBOTT-10P-163-0672843-00

PATIENT
  Age: 30 Year
  Sex: Female
  Weight: 113.5 kg

DRUGS (3)
  1. HUMIRA [Suspect]
     Indication: PSORIASIS
     Route: 058
     Dates: start: 20100501
  2. MICROGESTIN 1.5/30 [Concomitant]
     Indication: ORAL CONTRACEPTION
  3. NAPROSYN [Concomitant]
     Indication: PAIN

REACTIONS (6)
  - DIZZINESS [None]
  - FATIGUE [None]
  - RASH [None]
  - NASAL CONGESTION [None]
  - LUPUS-LIKE SYNDROME [None]
  - HEPATIC ENZYME INCREASED [None]
